FAERS Safety Report 6464583-2 (Version None)
Quarter: 2009Q4

REPORT INFORMATION
  Report Type: 
  Country: None (occurrence: None)
  Receive Date: 20091201
  Receipt Date: 20091118
  Transmission Date: 20100525
  Serious: Yes (Other)
  Sender: FDA-Public Use
  Company Number: US-PFIZER INC-2008066387

PATIENT
  Sex: Male
  Weight: 108.8 kg

DRUGS (10)
  1. NICOTROL [Suspect]
     Indication: SMOKING CESSATION THERAPY
     Dates: start: 20070101
  2. CHANTIX [Suspect]
     Indication: SMOKING CESSATION THERAPY
     Dosage: 1 MG, 2X/DAY
     Dates: start: 20090615, end: 20090901
  3. ALBUTEROL [Concomitant]
     Route: 048
  4. METFORMIN [Concomitant]
     Indication: DIABETES MELLITUS
     Dosage: 500 MG, UNK
  5. FLOVENT [Concomitant]
  6. SINGULAIR ^DIECKMANN^ [Concomitant]
     Dosage: 10 MG, UNK
  7. DILTIAZEM [Concomitant]
     Dosage: 240 MG, UNK
  8. LOVASTATIN [Concomitant]
     Dosage: 40 MG, UNK
  9. FLOMAX [Concomitant]
     Dosage: 0.4 MG, UNK
  10. ACETYLSALICYLIC ACID [Concomitant]
     Dosage: 81 MG, UNK

REACTIONS (14)
  - ABNORMAL DREAMS [None]
  - ANXIETY [None]
  - ASTHENIA [None]
  - BLOOD CHOLESTEROL [None]
  - BLOOD PRESSURE [None]
  - CONSTIPATION [None]
  - DRUG INEFFECTIVE [None]
  - DYSPNOEA [None]
  - INFLUENZA [None]
  - NASOPHARYNGITIS [None]
  - NERVOUSNESS [None]
  - TOBACCO USER [None]
  - TYPE 2 DIABETES MELLITUS [None]
  - WHEEZING [None]
